FAERS Safety Report 4550244-3 (Version None)
Quarter: 2005Q1

REPORT INFORMATION
  Report Type: 
  Country: None (occurrence: None)
  Receive Date: 20050107
  Receipt Date: 20020703
  Transmission Date: 20050727
  Serious: Yes (Death)
  Sender: FDA-Public Use
  Company Number: 2002IM000463

PATIENT
  Age: 75 Year
  Sex: Male
  Weight: 64.8644 kg

DRUGS (6)
  1. ACTIMMUNE [Suspect]
     Indication: INTERSTITIAL LUNG DISEASE
     Dosage: 100 UG; TIW; SUBCUTANEOUS
     Route: 058
     Dates: start: 20011116
  2. PREDNISONE [Concomitant]
  3. LASIX [Concomitant]
  4. SPIRONOLACTONE [Concomitant]
  5. COUMADIN [Concomitant]
  6. LANOXIN [Concomitant]

REACTIONS (1)
  - DEATH [None]
